FAERS Safety Report 5712247-2 (Version None)
Quarter: 2008Q2

REPORT INFORMATION
  Report Type: 
  Country: None (occurrence: None)
  Receive Date: 20080417
  Receipt Date: 20080409
  Transmission Date: 20081010
  Serious: Yes (Other)
  Sender: FDA-Public Use
  Company Number: 237851K07USA

PATIENT
  Age: 31 Year
  Sex: Female
  Weight: 85.7298 kg

DRUGS (5)
  1. REBIF [Suspect]
     Indication: MULTIPLE SCLEROSIS
     Dosage: 44 MCG, 3 IN 1 WEEKS, SUBCUTANEOUS
     Route: 058
     Dates: start: 20070313
  2. ALEVE (CAPLET) [Concomitant]
  3. NEURONTIN [Concomitant]
  4. BACLOFEN [Concomitant]
  5. PROVIGIL [Concomitant]

REACTIONS (9)
  - DIPLOPIA [None]
  - DRY EYE [None]
  - HYPOAESTHESIA [None]
  - IRITIS [None]
  - LHERMITTE'S SIGN [None]
  - MULTIPLE SCLEROSIS RELAPSE [None]
  - OCULAR HYPERAEMIA [None]
  - OPHTHALMOPLEGIA [None]
  - XEROPHTHALMIA [None]
